FAERS Safety Report 14480592 (Version 3)
Quarter: 2018Q1

REPORT INFORMATION
  Report Type: Spontaneous
  Country: NL (occurrence: NL)
  Receive Date: 20180202
  Receipt Date: 20180309
  Transmission Date: 20180509
  Serious: Yes (Hospitalization)
  Sender: FDA-Public Use
  Company Number: NL-009507513-1801NLD009630

PATIENT
  Age: 75 Year
  Sex: Female

DRUGS (13)
  1. ACETAMINOPHEN. [Concomitant]
     Active Substance: ACETAMINOPHEN
     Dosage: 3 TIMES A DAY TWICE 500 MG
  2. OXYNORM [Concomitant]
     Active Substance: OXYCODONE HYDROCHLORIDE
     Dosage: 6 TIMES 5 ML, 10MG/ML
     Route: 048
  3. KEYTRUDA [Suspect]
     Active Substance: PEMBROLIZUMAB
     Dosage: 67 ML, UNK
     Dates: start: 20180228
  4. MOVICOLON [Concomitant]
     Active Substance: POLYETHYLENE GLYCOL 3350\POTASSIUM CHLORIDE\SODIUM BICARBONATE\SODIUM CHLORIDE
     Dosage: UNK, PRN
  5. MORPHINE SULFATE. [Concomitant]
     Active Substance: MORPHINE SULFATE
     Dosage: 2 TIMES 60 MG PER DAY
     Dates: start: 20170113, end: 20180129
  6. ACETAMINOPHEN. [Concomitant]
     Active Substance: ACETAMINOPHEN
     Dosage: 2 DF, QID
     Dates: start: 2018
  7. AMOXICILLIN SANDOZ [Concomitant]
     Active Substance: AMOXICILLIN
     Indication: LUNG INFECTION
     Dosage: UNK
     Dates: start: 20180112, end: 20180120
  8. KEYTRUDA [Suspect]
     Active Substance: PEMBROLIZUMAB
     Indication: LUNG CANCER METASTATIC
     Dosage: UNK
     Dates: start: 20180116
  9. ORAMORPH [Concomitant]
     Active Substance: MORPHINE SULFATE
     Dosage: 6 TIMES 3 ML PER DAY, 10 MG/5ML
     Dates: start: 20180113
  10. OXYCODONE [Concomitant]
     Active Substance: OXYCODONE
     Dosage: 2 TIMES 30 MG PER DAY
  11. KEYTRUDA [Suspect]
     Active Substance: PEMBROLIZUMAB
     Dosage: UNK
     Dates: start: 20180206
  12. ABSTRAL [Concomitant]
     Active Substance: FENTANYL CITRATE
     Dosage: UP TO MAXIMUM OF 6 TIMES 100 MICROGRAM DAILY
     Route: 048
  13. FENTANYL. [Concomitant]
     Active Substance: FENTANYL
     Dosage: 100 MICROGRAM, Q3D

REACTIONS (9)
  - Pain [Unknown]
  - Chromaturia [Unknown]
  - Eating disorder [Recovering/Resolving]
  - Faeces soft [Unknown]
  - Weight decreased [Recovering/Resolving]
  - Drug effect incomplete [Unknown]
  - Constipation [Unknown]
  - Nausea [Recovering/Resolving]
  - Pyrexia [Recovered/Resolved]

NARRATIVE: CASE EVENT DATE: 2018
